FAERS Safety Report 8678935 (Version 4)
Quarter: 2013Q3

REPORT INFORMATION
  Report Type: Report from Study
  Country: BR (occurrence: BR)
  Receive Date: 20120723
  Receipt Date: 20130702
  Transmission Date: 20140515
  Serious: Yes (Hospitalization)
  Sender: FDA-Public Use
  Company Number: BR-ROCHE-1083805

PATIENT
  Age: 56 Year
  Sex: Female
  Weight: 83 kg

DRUGS (6)
  1. ACTEMRA [Suspect]
     Indication: STILL^S DISEASE ADULT ONSET
     Route: 065
     Dates: start: 20120101
  2. ACTEMRA [Suspect]
     Indication: RHEUMATOID ARTHRITIS
     Route: 065
     Dates: start: 20120129
  3. METHOTREXATE [Suspect]
     Indication: STILL^S DISEASE ADULT ONSET
     Route: 065
  4. PREDNISONE [Suspect]
     Indication: STILL^S DISEASE ADULT ONSET
     Route: 065
  5. FOLIN [Concomitant]
     Route: 065
  6. DIOSMIN [Concomitant]
     Route: 065

REACTIONS (8)
  - Deep vein thrombosis [Not Recovered/Not Resolved]
  - Hypotension [Recovered/Resolved]
  - Sepsis [Recovered/Resolved]
  - Nosocomial infection [Unknown]
  - Pyrexia [Recovered/Resolved]
  - Pyrexia [Recovering/Resolving]
  - Speech disorder [Unknown]
  - Urinary tract infection [Not Recovered/Not Resolved]
